FAERS Safety Report 10369447 (Version 2)
Quarter: 2014Q4

REPORT INFORMATION
  Report Type: Spontaneous
  Country: JP (occurrence: JP)
  Receive Date: 20140807
  Receipt Date: 20141110
  Transmission Date: 20150528
  Serious: Yes (Other)
  Sender: FDA-Public Use
  Company Number: JP-BAXTER-2014BAX045021

PATIENT
  Age: 32 Year
  Sex: Female

DRUGS (9)
  1. ISEPAMICIN [Suspect]
     Active Substance: ISEPAMICIN
     Indication: INCISION SITE INFECTION
     Route: 065
  2. CEFOZOPRAN [Suspect]
     Active Substance: CEFOZOPRAN
     Indication: INCISION SITE INFECTION
     Route: 065
  3. GAMMAGARD [Suspect]
     Active Substance: HUMAN IMMUNOGLOBULIN G
     Indication: COLITIS
     Route: 042
  4. VANCOMYCIN [Suspect]
     Active Substance: VANCOMYCIN
     Indication: CLOSTRIDIUM DIFFICILE INFECTION
     Route: 048
  5. VANCOMYCIN [Suspect]
     Active Substance: VANCOMYCIN
     Route: 048
  6. CEFAZOLIN [Suspect]
     Active Substance: CEFAZOLIN
     Indication: PROPHYLAXIS
     Route: 065
  7. VANCOMYCIN [Suspect]
     Active Substance: VANCOMYCIN
     Route: 054
  8. GAMMAGARD [Suspect]
     Active Substance: HUMAN IMMUNOGLOBULIN G
     Indication: OFF LABEL USE
  9. AMPICILLIN SULBACTAM [Suspect]
     Active Substance: AMPICILLIN SODIUM\SULBACTAM SODIUM
     Indication: PERITONITIS
     Route: 042

REACTIONS (1)
  - Drug ineffective [Not Recovered/Not Resolved]
